FAERS Safety Report 12867338 (Version 2)
Quarter: 2016Q4

REPORT INFORMATION
  Report Type: Spontaneous
  Country: US (occurrence: US)
  Receive Date: 20161020
  Receipt Date: 20161228
  Transmission Date: 20170207
  Serious: Yes (Other)
  Sender: FDA-Public Use
  Company Number: US-TURING PHARMACEUTICALS-2016TNG00046

PATIENT
  Age: 64 Year
  Sex: Female
  Weight: 69.25 kg

DRUGS (21)
  1. PROGRAF [Concomitant]
     Active Substance: TACROLIMUS\TACROLIMUS ANHYDROUS
     Dosage: 1 TABLETS, 1X/DAY
  2. LEUCOVORIN CALCIUM. [Concomitant]
     Active Substance: LEUCOVORIN CALCIUM
     Dosage: 1 TABLETS, 1X/DAY
     Dates: start: 2014
  3. ROSUVASTATIN. [Concomitant]
     Active Substance: ROSUVASTATIN
     Dosage: 1 TABLETS, 1X/DAY
     Dates: start: 2014
  4. AMLODIPINE [Concomitant]
     Active Substance: AMLODIPINE BESYLATE
     Dosage: 1 TABLETS, 1X/DAY
     Dates: start: 2014
  5. ALBUTEROL. [Concomitant]
     Active Substance: ALBUTEROL
     Dosage: UNK, AS NEEDED
     Dates: start: 2014
  6. PANTOPRAZOLE [Concomitant]
     Active Substance: PANTOPRAZOLE SODIUM
     Dosage: 1 TABLETS, 2X/DAY
     Dates: start: 2014
  7. AMITRIPTYLINE [Concomitant]
     Active Substance: AMITRIPTYLINE
     Dosage: 1 TABLETS, 1X/DAY
     Dates: start: 2014
  8. AMARYL [Concomitant]
     Active Substance: GLIMEPIRIDE
     Dosage: 1.5 TABLETS, 1X/DAY
     Dates: start: 2014
  9. ATOVAQUONE. [Concomitant]
     Active Substance: ATOVAQUONE
     Dosage: 2 TBSP, 1X/DAY
     Dates: start: 201606
  10. LEVAQUIN [Concomitant]
     Active Substance: LEVOFLOXACIN
     Dosage: UNK
     Dates: start: 20160930, end: 20160930
  11. ASPIRIN. [Concomitant]
     Active Substance: ASPIRIN
     Dosage: 1 TABLETS, 1X/DAY
     Dates: start: 2014
  12. GABAPENTIN. [Concomitant]
     Active Substance: GABAPENTIN
     Dosage: 1 TABLETS, 1X/DAY
     Dates: start: 2014
  13. MAGNESIUM CL [Concomitant]
     Dosage: 1 TABLETS, 2X/DAY
     Dates: start: 2014
  14. ALLOPURINOL. [Concomitant]
     Active Substance: ALLOPURINOL
     Dosage: 1 TABLETS, 2X/DAY
     Dates: start: 2014
  15. PROGRAF [Concomitant]
     Active Substance: TACROLIMUS\TACROLIMUS ANHYDROUS
     Dosage: 7 TABLETS, 1X/DAY
     Dates: start: 2014
  16. FLECAINIDE [Concomitant]
     Active Substance: FLECAINIDE
     Dosage: UNK, 2X/DAY
     Dates: start: 2014
  17. MULTIVITAMIN [Concomitant]
     Active Substance: VITAMINS
     Dosage: 1 TABLETS, 1X/DAY
     Dates: start: 2014
  18. ZOFRAN [Concomitant]
     Active Substance: ONDANSETRON HYDROCHLORIDE
     Dosage: UNK, AS NEEDED
     Dates: start: 2014
  19. DARAPRIM [Suspect]
     Active Substance: PYRIMETHAMINE
     Indication: INFECTION PROPHYLAXIS
     Dosage: 1 TABLETS, ONCE
     Route: 048
     Dates: start: 20160930, end: 20160930
  20. CELLCEPT [Concomitant]
     Active Substance: MYCOPHENOLATE MOFETIL\MYCOPHENOLATE MOFETIL HYDROCHLORIDE
     Dosage: 1 TABLETS, 2X/DAY
     Dates: start: 2014
  21. TIOTROPIUM [Concomitant]
     Active Substance: TIOTROPIUM
     Dosage: UNK, AS NEEDED
     Dates: start: 2014

REACTIONS (14)
  - Off label use [Recovered/Resolved]
  - Lip swelling [Unknown]
  - Pharyngeal oedema [Recovered/Resolved]
  - Dyspnoea [Recovered/Resolved]
  - Dysphonia [Unknown]
  - Choking sensation [Recovered/Resolved]
  - Swelling face [Recovering/Resolving]
  - Burning sensation [Recovering/Resolving]
  - Cough [Recovering/Resolving]
  - Throat lesion [Recovering/Resolving]
  - Paraesthesia [Recovering/Resolving]
  - Lip disorder [Recovering/Resolving]
  - Aphasia [Recovering/Resolving]
  - Secretion discharge [Recovering/Resolving]

NARRATIVE: CASE EVENT DATE: 2016
